FAERS Safety Report 9052942 (Version 1)
Quarter: 2013Q1

REPORT INFORMATION
  Report Type: Spontaneous
  Country: US (occurrence: US)
  Receive Date: 20130208
  Receipt Date: 20130208
  Transmission Date: 20140127
  Serious: Yes (Hospitalization, Other)
  Sender: FDA-Public Use
  Company Number: US-AMGEN-USASP2013006868

PATIENT
  Sex: Female

DRUGS (2)
  1. ENBREL [Suspect]
     Indication: PSORIATIC ARTHROPATHY
     Dosage: 50 MG, ONCE A WEEK
     Dates: start: 20110622
  2. ENBREL [Suspect]
     Indication: PSORIASIS

REACTIONS (7)
  - Neoplasm [Recovered/Resolved]
  - Neck surgery [Recovered/Resolved]
  - Vomiting [Recovered/Resolved]
  - Dysgeusia [Not Recovered/Not Resolved]
  - Arthralgia [Recovered/Resolved]
  - Injection site pain [Recovered/Resolved]
  - Psoriasis [Recovered/Resolved]
